FAERS Safety Report 5412666-8 (Version None)
Quarter: 2007Q3

REPORT INFORMATION
  Report Type: 
  Country: None (occurrence: None)
  Receive Date: 20070813
  Receipt Date: 20070802
  Transmission Date: 20080115
  Serious: Yes (Other)
  Sender: FDA-Public Use
  Company Number: AU-ROCHE-509987

PATIENT
  Age: 50 Year
  Sex: Male
  Weight: 91 kg

DRUGS (7)
  1. MYCOPHENOLATE MOFETIL [Suspect]
     Indication: DRUG USE FOR UNKNOWN INDICATION
     Route: 065
  2. EVEROLIMUS [Suspect]
     Route: 048
     Dates: start: 20070207, end: 20070207
  3. CYCLOSPORINE [Suspect]
     Route: 065
     Dates: start: 20070207, end: 20070207
  4. BACTRIM [Concomitant]
  5. VALGANCICLOVIR HCL [Concomitant]
  6. AMPHOTERICIN B [Concomitant]
  7. PREDNISOLONE [Concomitant]

REACTIONS (1)
  - HAEMOLYTIC URAEMIC SYNDROME [None]
